FAERS Safety Report 8000766-8 (Version None)
Quarter: 2011Q4

REPORT INFORMATION
  Report Type: 
  Country: None (occurrence: None)
  Receive Date: 20111222
  Receipt Date: 20111219
  Transmission Date: 20120403
  Serious: Yes (Death)
  Sender: FDA-Public Use
  Company Number: JP-JNJFOC-20111209409

PATIENT
  Age: 78 Year
  Sex: Female

DRUGS (6)
  1. GALANTAMINE HYDROBROMIDE [Suspect]
     Indication: DEMENTIA
     Route: 048
     Dates: start: 20110901, end: 20111207
  2. DONEPEZIL HYDROCHLORIDE [Suspect]
     Route: 065
     Dates: start: 20070101, end: 20110501
  3. DONEPEZIL HYDROCHLORIDE [Suspect]
     Indication: PRODUCT USED FOR UNKNOWN INDICATION
     Route: 065
     Dates: start: 20110501
  4. TOCOPHEROL ACETATE [Concomitant]
     Route: 048
     Dates: start: 20070101
  5. MUCOSTA [Concomitant]
     Route: 065
     Dates: start: 20070101
  6. NICERGOLINE [Concomitant]
     Route: 048
     Dates: start: 20070101

REACTIONS (1)
  - AORTIC DISSECTION [None]
